FAERS Safety Report 9751635 (Version 2)
Quarter: 2014Q1

REPORT INFORMATION
  Report Type: Spontaneous
  Country: IT (occurrence: IT)
  Receive Date: 20131212
  Receipt Date: 20140124
  Transmission Date: 20141002
  Serious: Yes (Other)
  Sender: FDA-Public Use
  Company Number: IT-ABBVIE-13P-083-1178322-00

PATIENT
  Age: 44 Year
  Sex: Female

DRUGS (3)
  1. DEPAKIN CHRONO [Suspect]
     Indication: MANIA
     Route: 048
     Dates: start: 20131118, end: 20131125
  2. QUETIAPINE [Suspect]
     Indication: MANIA
     Route: 048
     Dates: start: 20131113
  3. EUTIROX [Concomitant]
     Indication: PRODUCT USED FOR UNKNOWN INDICATION
     Dates: start: 20131113

REACTIONS (2)
  - Toxic skin eruption [Recovered/Resolved]
  - Rash generalised [Recovered/Resolved]
